FAERS Safety Report 10349844 (Version 2)
Quarter: 2014Q3

REPORT INFORMATION
  Report Type: Spontaneous
  Country: US (occurrence: US)
  Receive Date: 20140730
  Receipt Date: 20140904
  Transmission Date: 20150326
  Serious: No
  Sender: FDA-Public Use
  Company Number: US-JNJFOC-20140711492

PATIENT
  Sex: Female
  Weight: 90.72 kg

DRUGS (2)
  1. DURAGESIC [Suspect]
     Active Substance: FENTANYL
     Indication: SYSTEMIC LUPUS ERYTHEMATOSUS
     Route: 062
  2. DURAGESIC [Suspect]
     Active Substance: FENTANYL
     Indication: MULTIPLE SCLEROSIS
     Route: 062

REACTIONS (3)
  - Off label use [Unknown]
  - Poor quality drug administered [Unknown]
  - Product quality issue [Unknown]

NARRATIVE: CASE EVENT DATE: 2014
